FAERS Safety Report 6388932-9 (Version None)
Quarter: 2009Q4

REPORT INFORMATION
  Report Type: 
  Country: None (occurrence: None)
  Receive Date: 20091005
  Receipt Date: 20090925
  Transmission Date: 20100525
  Serious: No
  Sender: FDA-Public Use
  Company Number: US-MERCK-0909USA04135B1

PATIENT

DRUGS (4)
  1. JANUVIA [Suspect]
     Route: 064
  2. BLACK COHOSH [Concomitant]
     Route: 064
  3. VITAMINS (UNSPECIFIED) [Concomitant]
     Route: 064
  4. TYLENOL (CAPLET) [Concomitant]
     Route: 064

REACTIONS (1)
  - FOETAL HYPOKINESIA [None]
